FAERS Safety Report 9406472 (Version 4)
Quarter: 2013Q3

REPORT INFORMATION
  Report Type: Report from Study
  Country: AU (occurrence: AU)
  Receive Date: 20130718
  Receipt Date: 20130822
  Transmission Date: 20140515
  Serious: Yes (Hospitalization)
  Sender: FDA-Public Use
  Company Number: AU-ROCHE-1247075

PATIENT
  Age: 35 Year
  Sex: Female

DRUGS (13)
  1. PERTUZUMAB [Suspect]
     Indication: BREAST CANCER
     Dosage: LAST DOSE PRIOR TO SAE:27/JUN/2013
     Route: 042
     Dates: start: 20130627
  2. TRASTUZUMAB [Suspect]
     Indication: BREAST CANCER
     Dosage: LAST DOSE PRIOR TO SAE: 28/JUN/2013
     Route: 042
     Dates: start: 20130628
  3. CEFTRIAXONE [Suspect]
     Indication: PRODUCT USED FOR UNKNOWN INDICATION
     Route: 065
     Dates: start: 20130707, end: 20130709
  4. DOCETAXEL [Suspect]
     Indication: BREAST CANCER
     Dosage: LAST DOSE PRIOR TO SAE: 28/JUN/2013
     Route: 042
     Dates: start: 20130628
  5. METRONIDAZOLE [Suspect]
     Indication: PRODUCT USED FOR UNKNOWN INDICATION
     Route: 065
     Dates: start: 20130707, end: 20130709
  6. CANESTEN CREAM [Concomitant]
     Route: 065
     Dates: start: 20130714, end: 20130722
  7. LORATADINE [Concomitant]
     Route: 065
     Dates: start: 20130627
  8. PARACETAMOL [Concomitant]
     Route: 065
     Dates: start: 20130627
  9. ONDANSETRON [Concomitant]
     Route: 065
     Dates: start: 20130627
  10. ONDANSETRON [Concomitant]
     Route: 065
     Dates: start: 20130627
  11. DEXAMETHASONE [Concomitant]
     Route: 065
     Dates: start: 20130627
  12. LOPERAMIDE [Concomitant]
     Route: 065
     Dates: start: 20130627
  13. METOCLOPRAMIDE [Concomitant]
     Route: 065
     Dates: start: 20130627

REACTIONS (1)
  - Febrile neutropenia [Recovered/Resolved]
